FAERS Safety Report 4546432-2 (Version None)
Quarter: 2005Q1

REPORT INFORMATION
  Report Type: 
  Country: None (occurrence: None)
  Receive Date: 20050103
  Receipt Date: 20041215
  Transmission Date: 20050727
  Serious: Yes (Other)
  Sender: FDA-Public Use
  Company Number: EWC041241932

PATIENT
  Age: 83 Year
  Sex: Female

DRUGS (7)
  1. OLANZAPINE [Suspect]
     Indication: PARANOID PERSONALITY DISORDER
     Dosage: 2.5 MG DAY
     Dates: start: 20041025, end: 20041103
  2. CELEBREX [Concomitant]
  3. CLONAZEPAM [Concomitant]
  4. SINTROM [Concomitant]
  5. ACETAMINOPHEN [Concomitant]
  6. VENLAFAXINE HCL [Concomitant]
  7. IMOVANE (ZOPICLONE) [Concomitant]

REACTIONS (3)
  - CHONDROCALCINOSIS [None]
  - NEUTROPENIA [None]
  - PAIN [None]
